FAERS Safety Report 9058754 (Version 1)
Quarter: 2013Q1

REPORT INFORMATION
  Report Type: Spontaneous
  Country: US (occurrence: US)
  Receive Date: 20130204
  Receipt Date: 20130204
  Transmission Date: 20140127
  Serious: No
  Sender: FDA-Public Use
  Company Number: US-009507513-1301USA013613

PATIENT
  Age: 57 Year
  Sex: Female

DRUGS (9)
  1. DULERA [Suspect]
     Indication: ASTHMA
     Dosage: 1 PUFF, BID
     Route: 055
     Dates: start: 20121201
  2. DULERA [Suspect]
     Dosage: 2 PUFF, BID
  3. DULERA [Suspect]
     Dosage: 1 PUFF, BID
  4. TOPROL XL TABLETS [Concomitant]
  5. LISINOPRIL [Concomitant]
  6. IRON (UNSPECIFIED) [Concomitant]
  7. ASPIRIN [Concomitant]
     Dosage: LOW DOSE
  8. VITAMINS (UNSPECIFIED) [Concomitant]
  9. OMEGA-3 MARINE TRIGLYCERIDES [Concomitant]
     Dosage: FISH OIL

REACTIONS (3)
  - Cough [Unknown]
  - Dysphonia [Unknown]
  - Therapeutic response decreased [Unknown]
